FAERS Safety Report 5296697-7 (Version None)
Quarter: 2007Q2

REPORT INFORMATION
  Report Type: 
  Country: None (occurrence: None)
  Receive Date: 20070413
  Receipt Date: 20070406
  Transmission Date: 20071010
  Serious: Yes (Hospitalization)
  Sender: FDA-Public Use
  Company Number: JP-ABBOTT-07P-087-0364323-00

PATIENT
  Age: 43 Year
  Sex: Female
  Weight: 42 kg

DRUGS (3)
  1. CLARITHROMYCIN [Suspect]
     Indication: PHARYNGITIS
     Route: 048
     Dates: start: 20060408, end: 20060413
  2. COCARL [Suspect]
     Indication: PHARYNGITIS
     Route: 048
     Dates: start: 20060408, end: 20060413
  3. COUGHCODE-N [Suspect]
     Indication: BRONCHITIS
     Dates: start: 20060408, end: 20060413

REACTIONS (3)
  - BILIARY CIRRHOSIS PRIMARY [None]
  - HEPATITIS [None]
  - LIVER DISORDER [None]
